FAERS Safety Report 5205170-3 (Version None)
Quarter: 2007Q1

REPORT INFORMATION
  Report Type: 
  Country: None (occurrence: None)
  Receive Date: 20070108
  Receipt Date: 20061228
  Transmission Date: 20070707
  Serious: Yes (Hospitalization)
  Sender: FDA-Public Use
  Company Number: 2006SP008992

PATIENT
  Age: 63 Year
  Sex: Male

DRUGS (6)
  1. TEMODAL [Suspect]
     Indication: ANAPLASTIC ASTROCYTOMA
     Dosage: PO
     Route: 048
     Dates: start: 20061101, end: 20061215
  2. EXCEGRAN (ZONISAMIDE) [Suspect]
     Indication: DRUG USE FOR UNKNOWN INDICATION
     Dosage: 2 DF; BID; PO
     Route: 048
  3. DECADRON [Suspect]
     Indication: DRUG USE FOR UNKNOWN INDICATION
     Dosage: 4 DF; PO
     Route: 048
  4. RADIOTHERAPY [Concomitant]
  5. SELBEX [Concomitant]
  6. NAUZELIN [Concomitant]

REACTIONS (4)
  - ALANINE AMINOTRANSFERASE INCREASED [None]
  - ASPARTATE AMINOTRANSFERASE INCREASED [None]
  - HEPATIC FUNCTION ABNORMAL [None]
  - RASH [None]
